FAERS Safety Report 10027554 (Version 2)
Quarter: 2014Q2

REPORT INFORMATION
  Report Type: Spontaneous
  Country: DE (occurrence: DE)
  Receive Date: 20140321
  Receipt Date: 20140502
  Transmission Date: 20141212
  Serious: Yes (Other)
  Sender: FDA-Public Use
  Company Number: DE-UCBSA-114798

PATIENT
  Sex: Female
  Weight: 100 kg

DRUGS (2)
  1. NEUPRO [Suspect]
     Indication: RESTLESS LEGS SYNDROME
     Dosage: DOSE: 6MG/24 HOURS
     Dates: start: 201311
  2. NEUPRO [Suspect]
     Indication: RESTLESS LEGS SYNDROME
     Dosage: DOSE: 3 MG/24 HOURS
     Dates: start: 201403, end: 201404

REACTIONS (3)
  - Application site irritation [Unknown]
  - Application site vesicles [Unknown]
  - Overdose [Unknown]
